FAERS Safety Report 24038558 (Version 1)
Quarter: 2024Q3

REPORT INFORMATION
  Report Type: Report from Study
  Country: US (occurrence: US)
  Receive Date: 20240702
  Receipt Date: 20240702
  Transmission Date: 20241016
  Serious: No
  Sender: RANBAXY
  Company Number: US-SUN PHARMACEUTICAL INDUSTRIES LTD-2024R1-452785

PATIENT
  Sex: Male

DRUGS (6)
  1. ABSORICA [Suspect]
     Active Substance: ISOTRETINOIN
     Indication: Acne
     Dosage: 100 MILLIGRAM, BID
     Route: 065
     Dates: start: 2024, end: 2024
  2. ABSORICA [Suspect]
     Active Substance: ISOTRETINOIN
     Indication: Dry skin
  3. ABSORICA [Suspect]
     Active Substance: ISOTRETINOIN
     Indication: Lip dry
  4. CITALOPRAM [Concomitant]
     Active Substance: CITALOPRAM\CITALOPRAM HYDROBROMIDE
     Indication: Product used for unknown indication
     Dosage: 10 MILLIGRAM, QD
     Route: 065
  5. MINOXIDIL [Concomitant]
     Active Substance: MINOXIDIL
     Indication: Alopecia
     Dosage: UNK
     Route: 065
  6. Wegovi [Concomitant]
     Indication: Product used for unknown indication
     Dosage: (2.4 MG/0.5ML) 10 INJECTORS, WEEKLY
     Route: 065

REACTIONS (2)
  - Alopecia [Unknown]
  - Therapy cessation [Unknown]

NARRATIVE: CASE EVENT DATE: 20240101
